FAERS Safety Report 14291390 (Version 1)
Quarter: 2017Q4

REPORT INFORMATION
  Report Type: Report from Study
  Country: US (occurrence: US)
  Receive Date: 20171215
  Receipt Date: 20171215
  Transmission Date: 20180321
  Serious: Yes (Death, Hospitalization, Other)
  Sender: FDA-Public Use
  Company Number: US-AMGEN-USASL2015142405

PATIENT
  Age: 85 Year
  Sex: Female

DRUGS (1)
  1. PROLIA [Suspect]
     Active Substance: DENOSUMAB
     Indication: OSTEOPOROSIS
     Dosage: 60 MG, Q6MO
     Route: 058
     Dates: start: 20150722, end: 20150729

REACTIONS (5)
  - Headache [Recovered/Resolved]
  - Dehydration [Recovered/Resolved]
  - Neoplasm malignant [Recovered/Resolved]
  - Urinary tract infection [Recovered/Resolved]
  - Death [Fatal]
